FAERS Safety Report 17856131 (Version 1)
Quarter: 2020Q2

REPORT INFORMATION
  Report Type: Spontaneous
  Country: DE (occurrence: DE)
  Receive Date: 20200603
  Receipt Date: 20200603
  Transmission Date: 20200714
  Serious: Yes (Hospitalization)
  Sender: FDA-Public Use
  Company Number: NVSC2020DE152422

PATIENT
  Age: 12 Year
  Sex: Male
  Weight: 35 kg

DRUGS (4)
  1. LAMOTRIGINE. [Suspect]
     Active Substance: LAMOTRIGINE
     Indication: LENNOX-GASTAUT SYNDROME
     Dosage: 10 MG, Q12H (10-0-10 MG)
     Route: 048
  2. INOVELON [Concomitant]
     Active Substance: RUFINAMIDE
     Indication: LENNOX-GASTAUT SYNDROME
     Dosage: 480 MG, Q12H (480-0-480 MG)
     Route: 048
     Dates: end: 20191211
  3. ORFIRIL [Suspect]
     Active Substance: VALPROATE SODIUM
     Indication: LENNOX-GASTAUT SYNDROME
     Dosage: 300 MG, Q12H (300-0-300 MG)
     Route: 048
     Dates: end: 20191212
  4. TOPIRAMATE. [Suspect]
     Active Substance: TOPIRAMATE
     Indication: LENNOX-GASTAUT SYNDROME
     Dosage: 75 MG, Q12H (75-0-75 MG)
     Route: 048

REACTIONS (2)
  - Medication error [Recovered/Resolved]
  - Fall [Unknown]

NARRATIVE: CASE EVENT DATE: 20191211
